FAERS Safety Report 5907484-8 (Version None)
Quarter: 2008Q3

REPORT INFORMATION
  Report Type: 
  Country: None (occurrence: None)
  Receive Date: 20080929
  Receipt Date: 20080922
  Transmission Date: 20090109
  Serious: Yes (Hospitalization)
  Sender: FDA-Public Use
  Company Number: US024554

PATIENT
  Age: 67 Year
  Sex: Male
  Weight: 62 kg

DRUGS (6)
  1. ARSENIC TRIOXIDE [Suspect]
     Indication: MYELODYSPLASTIC SYNDROME
     Dosage: 15 MG TWO TIMES PER WEEK (3 CYCLES) INTRAVENOUS DRIP
     Route: 041
     Dates: start: 20080723, end: 20080808
  2. ARSENIC TRIOXIDE [Suspect]
     Indication: MYELODYSPLASTIC SYNDROME
     Dosage: INTRAVENOUS DRIP
     Route: 041
     Dates: start: 20080902
  3. ZELITREX /01269701/ [Concomitant]
  4. POTASSIUM CHLORIDE [Concomitant]
  5. ATRA [Concomitant]
  6. MAG 2 [Concomitant]

REACTIONS (6)
  - BRONCHOPNEUMONIA [None]
  - HAEMOGLOBIN DECREASED [None]
  - NEUTROPHIL PERCENTAGE DECREASED [None]
  - PLATELET COUNT DECREASED [None]
  - RESPIRATORY DEPRESSION [None]
  - WHITE BLOOD CELL COUNT DECREASED [None]
